FAERS Safety Report 8605738 (Version 3)
Quarter: 2013Q2

REPORT INFORMATION
  Report Type: Spontaneous
  Country: US (occurrence: US)
  Receive Date: 20120608
  Receipt Date: 20130624
  Transmission Date: 20140414
  Serious: Yes (Other)
  Sender: FDA-Public Use
  Company Number: US-PFIZER INC-2012136277

PATIENT
  Age: 54 Year
  Sex: Female

DRUGS (1)
  1. LYRICA [Suspect]
     Indication: PAIN
     Dosage: 2 DF, 1X/DAY (STRENGTH 150, TAKE 2 TABLET DAILY)
     Dates: start: 20111011

REACTIONS (2)
  - Cardiac disorder [Unknown]
  - Transient ischaemic attack [Unknown]
